FAERS Safety Report 12637391 (Version 1)
Quarter: 2016Q3

REPORT INFORMATION
  Report Type: Spontaneous
  Country: US (occurrence: US)
  Receive Date: 20160809
  Receipt Date: 20160809
  Transmission Date: 20161109
  Serious: No
  Sender: FDA-Public Use
  Company Number: US-BEH-2016060601

PATIENT
  Sex: Female
  Weight: 117 kg

DRUGS (32)
  1. OLANZAPINE. [Concomitant]
     Active Substance: OLANZAPINE
  2. MOMETASONE [Concomitant]
     Active Substance: MOMETASONE
  3. CELECOXIB. [Concomitant]
     Active Substance: CELECOXIB
  4. METHOTREXATE. [Concomitant]
     Active Substance: METHOTREXATE
  5. DIAZEPAM. [Concomitant]
     Active Substance: DIAZEPAM
  6. FLUCONAZOLE. [Concomitant]
     Active Substance: FLUCONAZOLE
  7. PRIVIGEN [Suspect]
     Active Substance: HUMAN IMMUNOGLOBULIN G
     Indication: CHRONIC INFLAMMATORY DEMYELINATING POLYRADICULONEUROPATHY
     Route: 042
     Dates: start: 20151014
  8. MONTELUKAST [Concomitant]
     Active Substance: MONTELUKAST SODIUM
  9. FAMOTIDINE. [Concomitant]
     Active Substance: FAMOTIDINE
  10. ALEVE [Concomitant]
     Active Substance: NAPROXEN SODIUM
  11. ALLEGRY [Concomitant]
  12. SPIRONOLACTONE. [Concomitant]
     Active Substance: SPIRONOLACTONE
  13. CEFTIN [Concomitant]
     Active Substance: CEFUROXIME AXETIL
  14. NYSTATIN. [Concomitant]
     Active Substance: NYSTATIN
  15. HEPARIN [Concomitant]
     Active Substance: HEPARIN SODIUM
  16. NEXIUM [Concomitant]
     Active Substance: ESOMEPRAZOLE MAGNESIUM
  17. FOLIC ACID. [Concomitant]
     Active Substance: FOLIC ACID
  18. CIPRO [Concomitant]
     Active Substance: CIPROFLOXACIN HYDROCHLORIDE
  19. TRAMADOL. [Concomitant]
     Active Substance: TRAMADOL
  20. VITAMIN D [Concomitant]
     Active Substance: CHOLECALCIFEROL
  21. EPIPEN [Concomitant]
     Active Substance: EPINEPHRINE
  22. CYANCOBALMIN [Concomitant]
  23. NYSTATIN. [Concomitant]
     Active Substance: NYSTATIN
  24. FLUOXETINE [Concomitant]
     Active Substance: FLUOXETINE HYDROCHLORIDE
  25. DIAZEPAM. [Concomitant]
     Active Substance: DIAZEPAM
  26. ACETAMINOPHEN. [Concomitant]
     Active Substance: ACETAMINOPHEN
  27. DIPHENHYDRAMINE. [Concomitant]
     Active Substance: DIPHENHYDRAMINE
  28. SODIUM CHLORIDE. [Concomitant]
     Active Substance: SODIUM CHLORIDE
  29. OLANZAPINE. [Concomitant]
     Active Substance: OLANZAPINE
  30. PROVENTIL [Concomitant]
     Active Substance: ALBUTEROL
  31. ASPIRIN. [Concomitant]
     Active Substance: ASPIRIN
  32. MAGNESIUM [Concomitant]
     Active Substance: MAGNESIUM

REACTIONS (4)
  - Tremor [Unknown]
  - Headache [Unknown]
  - Asthenia [Unknown]
  - Pain [Unknown]
